FAERS Safety Report 26147899 (Version 1)
Quarter: 2025Q4

REPORT INFORMATION
  Report Type: Spontaneous
  Country: US (occurrence: US)
  Receive Date: 20251212
  Receipt Date: 20251212
  Transmission Date: 20260117
  Serious: Yes (Congenital Anomaly, Other)
  Sender: ALEXION PHARMACEUTICALS
  Company Number: US-ASTRAZENECA-202512NAM005324US

PATIENT
  Sex: Female
  Weight: 1.361 kg

DRUGS (1)
  1. STRENSIQ [Suspect]
     Active Substance: ASFOTASE ALFA
     Dosage: UNK

REACTIONS (4)
  - Chromosomal deletion [Unknown]
  - Foetal growth restriction [Unknown]
  - Premature baby [Unknown]
  - Foetal exposure during pregnancy [Unknown]
